FAERS Safety Report 7740561-8 (Version None)
Quarter: 2011Q3

REPORT INFORMATION
  Report Type: 
  Country: None (occurrence: None)
  Receive Date: 20110909
  Receipt Date: 20110831
  Transmission Date: 20111222
  Serious: Yes (Other)
  Sender: FDA-Public Use
  Company Number: JP-BRISTOL-MYERS SQUIBB COMPANY-16013575

PATIENT
  Age: 30 Year
  Sex: Male

DRUGS (13)
  1. CLONAZEPAM [Concomitant]
  2. ABILIFY [Suspect]
     Indication: SCHIZOPHRENIA
     Dosage: 12 TO 24 ML
     Route: 048
  3. PIMOZIDE [Concomitant]
  4. ETHYL LOFLAZEPATE [Concomitant]
  5. NITRAZEPAM [Concomitant]
     Dosage: TABLET
  6. BROMAZEPAM [Concomitant]
  7. FLURAZEPAM [Concomitant]
     Dosage: CAPSULE
  8. DIPHENHYDRAMINE HCL [Concomitant]
  9. FLUNITRAZEPAM [Concomitant]
  10. VALPROATE SODIUM [Concomitant]
  11. LEVOMEPROMAZINE [Concomitant]
  12. SULPIRIDE [Concomitant]
  13. TPN [Concomitant]

REACTIONS (3)
  - REFUSAL OF TREATMENT BY PATIENT [None]
  - ABNORMAL BEHAVIOUR [None]
  - DIET REFUSAL [None]
